FAERS Safety Report 5374162-6 (Version None)
Quarter: 2007Q2

REPORT INFORMATION
  Report Type: 
  Country: None (occurrence: None)
  Receive Date: 20070627
  Receipt Date: 20061206
  Transmission Date: 20071010
  Serious: Yes (Other)
  Sender: FDA-Public Use
  Company Number: 474375

PATIENT
  Age: 52 Year
  Sex: Male

DRUGS (1)
  1. CAPECITABINE (CAPECITABINE) [Suspect]
     Indication: RECTAL CANCER
     Dosage: 1500 MG 2 PER DAY

REACTIONS (1)
  - PALMAR-PLANTAR ERYTHRODYSAESTHESIA SYNDROME [None]
